FAERS Safety Report 20726291 (Version 4)
Quarter: 2024Q1

REPORT INFORMATION
  Report Type: Spontaneous
  Country: US (occurrence: US)
  Receive Date: 20220419
  Receipt Date: 20240208
  Transmission Date: 20240409
  Serious: No
  Sender: FDA-Public Use
  Company Number: US-PFIZER INC-2021545904

PATIENT
  Age: 75 Year
  Sex: Female

DRUGS (2)
  1. IBRANCE [Suspect]
     Active Substance: PALBOCICLIB
     Indication: Breast cancer female
     Dosage: 100 MG
  2. IBRANCE [Suspect]
     Active Substance: PALBOCICLIB
     Dosage: 1 TABLET PO DAILY FOR 3 WEEKS THEN 1 WEEK OFF
     Route: 048

REACTIONS (4)
  - Chills [Unknown]
  - Hyperhidrosis [Unknown]
  - Cold sweat [Unknown]
  - Feeling of body temperature change [Unknown]
